FAERS Safety Report 14337080 (Version 1)
Quarter: 2017Q4

REPORT INFORMATION
  Report Type: Spontaneous
  Country: DE (occurrence: DE)
  Receive Date: 20171229
  Receipt Date: 20171229
  Transmission Date: 20180321
  Serious: Yes (Hospitalization, Other)
  Sender: FDA-Public Use
  Company Number: DE-PFIZER INC-2017554219

PATIENT
  Age: 64 Year
  Sex: Female
  Weight: 100 kg

DRUGS (2)
  1. PACLITAXEL. [Suspect]
     Active Substance: PACLITAXEL
     Dosage: 350 MG, 1X/DAY
     Route: 042
  2. CARBOPLATIN. [Suspect]
     Active Substance: CARBOPLATIN
     Dosage: 450 MG, 1X/DAY
     Route: 042

REACTIONS (7)
  - Blood glucose increased [Unknown]
  - Hypotension [Recovering/Resolving]
  - Micturition urgency [Unknown]
  - Feeling hot [Unknown]
  - Nausea [Unknown]
  - Flushing [Unknown]
  - Hyperhidrosis [Unknown]

NARRATIVE: CASE EVENT DATE: 20171012
